FAERS Safety Report 7113700-X (Version None)
Quarter: 2010Q4

REPORT INFORMATION
  Report Type: 
  Country: None (occurrence: None)
  Receive Date: 20101119
  Receipt Date: 20101110
  Transmission Date: 20110411
  Serious: Yes (Hospitalization)
  Sender: FDA-Public Use
  Company Number: DE-ASTRAZENECA-2010SE53577

PATIENT
  Age: 61 Year
  Sex: Female
  Weight: 80 kg

DRUGS (9)
  1. ANASTROZOLE [Suspect]
     Indication: BREAST CANCER
     Route: 048
     Dates: start: 20100222
  2. INSUMAN RAPID [Suspect]
     Indication: DIABETES MELLITUS
     Route: 058
     Dates: start: 19910101
  3. INSUMAN BASAL [Suspect]
     Indication: DIABETES MELLITUS
     Route: 058
     Dates: start: 19910101
  4. THEOPHYLLINE [Concomitant]
     Indication: ASTHMA
     Route: 048
  5. FORADIL [Concomitant]
     Indication: ASTHMA
     Route: 050
  6. CYCLOCAPS [Concomitant]
     Indication: ASTHMA
     Dosage: DAILY ONCE
     Route: 048
  7. AERIUS DA [Concomitant]
     Indication: ASTHMA
     Route: 048
  8. AERIUS DA [Concomitant]
     Indication: HYPERSENSITIVITY
     Route: 048
  9. OMEPRAZOLE [Concomitant]
     Indication: PROPHYLAXIS AGAINST GASTROINTESTINAL ULCER
     Route: 048
     Dates: start: 20090805

REACTIONS (1)
  - HYPOGLYCAEMIA [None]
